FAERS Safety Report 18721840 (Version 2)
Quarter: 2021Q1

REPORT INFORMATION
  Report Type: Report from Study
  Country: CA (occurrence: CA)
  Receive Date: 20210111
  Receipt Date: 20210330
  Transmission Date: 20210419
  Serious: Yes (Hospitalization, Other)
  Sender: FDA-Public Use
  Company Number: CA-JNJFOC-20210108303

PATIENT
  Age: 35 Year
  Sex: Male

DRUGS (2)
  1. STELARA [Suspect]
     Active Substance: USTEKINUMAB
  2. STELARA [Suspect]
     Active Substance: USTEKINUMAB
     Indication: CROHN^S DISEASE
     Route: 058
     Dates: start: 20181023

REACTIONS (5)
  - Metabolic surgery [Unknown]
  - Constipation [Unknown]
  - COVID-19 [Unknown]
  - Fatigue [Unknown]
  - Haematochezia [Unknown]

NARRATIVE: CASE EVENT DATE: 202012
